FAERS Safety Report 15114329 (Version 3)
Quarter: 2018Q3

REPORT INFORMATION
  Report Type: Spontaneous
  Country: US (occurrence: US)
  Receive Date: 20180706
  Receipt Date: 20180727
  Transmission Date: 20181010
  Serious: No
  Sender: FDA-Public Use
  Company Number: US-PFIZER INC-2018270357

PATIENT
  Age: 57 Year
  Sex: Female

DRUGS (2)
  1. EXCEDRIN MIGRAINE [Concomitant]
     Active Substance: ACETAMINOPHEN\ASPIRIN\CAFFEINE
     Indication: MIGRAINE
     Dosage: UNK
  2. ADVIL MIGRAINE [Suspect]
     Active Substance: IBUPROFEN
     Indication: MIGRAINE
     Dosage: 2 DF, DAILY
     Dates: start: 2018

REACTIONS (1)
  - Drug ineffective [Not Recovered/Not Resolved]

NARRATIVE: CASE EVENT DATE: 2018
